FAERS Safety Report 8083264-5 (Version None)
Quarter: 2012Q1

REPORT INFORMATION
  Report Type: 
  Country: None (occurrence: None)
  Receive Date: 20120127
  Receipt Date: 20110304
  Transmission Date: 20120608
  Serious: No
  Sender: FDA-Public Use
  Company Number: US-ABBOTT-11P-163-0709376-00

PATIENT
  Age: 47 Year
  Sex: Male

DRUGS (2)
  1. HUMIRA [Suspect]
  2. HUMIRA [Suspect]
     Indication: CROHN'S DISEASE

REACTIONS (1)
  - DRUG EFFECT DECREASED [None]
